FAERS Safety Report 6261997-0 (Version None)
Quarter: 2009Q3

REPORT INFORMATION
  Report Type: 
  Country: None (occurrence: None)
  Receive Date: 20090702
  Receipt Date: 20090422
  Transmission Date: 20100115
  Serious: No
  Sender: FDA-Public Use
  Company Number: 1000005901

PATIENT
  Age: 70 Year
  Sex: Female

DRUGS (4)
  1. BYSTOLIC [Suspect]
     Indication: HYPERTENSION
     Dosage: 5 MG (5 MG, 1 IN 1 D), ORAL
     Route: 048
     Dates: start: 20090417
  2. ZETIA [Concomitant]
  3. CALCIUM [Concomitant]
  4. FISH OIL [Concomitant]

REACTIONS (1)
  - DYSPNOEA [None]
